FAERS Safety Report 20361227 (Version 1)
Quarter: 2022Q1

REPORT INFORMATION
  Report Type: Spontaneous
  Country: US (occurrence: None)
  Receive Date: 20220120
  Receipt Date: 20220120
  Transmission Date: 20220424
  Serious: Yes (Other)
  Sender: FDA-Public Use
  Company Number: None

PATIENT
  Age: 48 Year
  Sex: Female
  Weight: 96.3 kg

DRUGS (1)
  1. XARELTO [Suspect]
     Active Substance: RIVAROXABAN
     Indication: Thrombosis
     Dosage: FREQUENCY : TWICE A DAY;?
     Route: 048
     Dates: start: 20211229, end: 20220114

REACTIONS (12)
  - Insomnia [None]
  - Urticaria [None]
  - Decreased appetite [None]
  - Hypoaesthesia [None]
  - Paraesthesia [None]
  - Muscle spasms [None]
  - Back pain [None]
  - Pruritus [None]
  - Fatigue [None]
  - Diarrhoea [None]
  - Hot flush [None]
  - Fungal infection [None]

NARRATIVE: CASE EVENT DATE: 20220101
